FAERS Safety Report 15969518 (Version 3)
Quarter: 2019Q4

REPORT INFORMATION
  Report Type: Spontaneous
  Country: CA (occurrence: CA)
  Receive Date: 20190215
  Receipt Date: 20191008
  Transmission Date: 20200122
  Serious: No
  Sender: FDA-Public Use
  Company Number: CA-PFM-2018-12617

PATIENT

DRUGS (9)
  1. TETRABENAZINE. [Concomitant]
     Active Substance: TETRABENAZINE
     Indication: AKATHISIA
  2. TETRABENAZINE. [Concomitant]
     Active Substance: TETRABENAZINE
     Indication: TARDIVE DYSKINESIA
     Dosage: UNKNOWN
     Route: 065
  3. BENZTROPINE. [Suspect]
     Active Substance: BENZTROPINE
     Indication: TARDIVE DYSKINESIA
     Dosage: UNKNOWN
     Route: 065
  4. BENZTROPINE. [Suspect]
     Active Substance: BENZTROPINE
     Indication: AKATHISIA
  5. GABAPENTIN. [Suspect]
     Active Substance: GABAPENTIN
     Indication: AKATHISIA
  6. PROPRANOLOL [Suspect]
     Active Substance: PROPRANOLOL HYDROCHLORIDE
     Indication: TARDIVE DYSKINESIA
     Dosage: UNK
     Route: 065
  7. PROPRANOLOL [Suspect]
     Active Substance: PROPRANOLOL HYDROCHLORIDE
     Indication: AKATHISIA
  8. PROPRANOLOL [Suspect]
     Active Substance: PROPRANOLOL HYDROCHLORIDE
     Indication: OFF LABEL USE
  9. GABAPENTIN. [Suspect]
     Active Substance: GABAPENTIN
     Indication: TARDIVE DYSKINESIA
     Dosage: UNKNOWN
     Route: 065

REACTIONS (4)
  - Product use in unapproved indication [Unknown]
  - Product use issue [Unknown]
  - Drug ineffective [Unknown]
  - Off label use [Unknown]
